FAERS Safety Report 19584091 (Version 4)
Quarter: 2025Q1

REPORT INFORMATION
  Report Type: Report from Study
  Country: US (occurrence: US)
  Receive Date: 20210720
  Receipt Date: 20250301
  Transmission Date: 20250409
  Serious: Yes (Other)
  Sender: JAZZ
  Company Number: US-JAZZ-2019-US-001293

PATIENT
  Sex: Female

DRUGS (40)
  1. XYREM [Suspect]
     Active Substance: SODIUM OXYBATE
     Indication: Narcolepsy
     Dosage: 2.25 GRAM, BID
     Route: 048
     Dates: start: 201503, end: 201503
  2. XYREM [Suspect]
     Active Substance: SODIUM OXYBATE
     Indication: Cataplexy
     Route: 048
     Dates: start: 201503, end: 201504
  3. XYREM [Suspect]
     Active Substance: SODIUM OXYBATE
     Indication: Somnolence
     Dosage: 4.5 GRAM, BID
     Route: 048
     Dates: start: 201504
  4. METHYLPHENIDATE [Concomitant]
     Active Substance: METHYLPHENIDATE
  5. MELOXICAM [Concomitant]
     Active Substance: MELOXICAM
  6. TOPIRAMATE [Concomitant]
     Active Substance: TOPIRAMATE
  7. TIZANIDINE HYDROCHLORIDE [Concomitant]
     Active Substance: TIZANIDINE HYDROCHLORIDE
  8. FLOVENT HFA [Concomitant]
     Active Substance: FLUTICASONE PROPIONATE
  9. OXYBUTYNIN [Concomitant]
     Active Substance: OXYBUTYNIN
  10. TOPAMAX [Concomitant]
     Active Substance: TOPIRAMATE
  11. CYCLOBENZAPRINE [Concomitant]
     Active Substance: CYCLOBENZAPRINE
  12. LIDOCAINE AND PRILOCAINE [Concomitant]
     Active Substance: LIDOCAINE\PRILOCAINE
  13. AMOXICILLIN [Concomitant]
     Active Substance: AMOXICILLIN
  14. CLARITHROMYCIN [Concomitant]
     Active Substance: CLARITHROMYCIN
  15. MOMETASONE FUROATE [Concomitant]
     Active Substance: MOMETASONE FUROATE
  16. LIDOCAINE HYDROCHLORIDE [Concomitant]
     Active Substance: LIDOCAINE HYDROCHLORIDE
  17. CITALOPRAM HYDROBROMIDE [Concomitant]
     Active Substance: CITALOPRAM HYDROBROMIDE
  18. CLONAZEPAM [Concomitant]
     Active Substance: CLONAZEPAM
  19. METFORMIN HYDROCHLORIDE [Concomitant]
     Active Substance: METFORMIN HYDROCHLORIDE
  20. OXCARBAZEPINE [Concomitant]
     Active Substance: OXCARBAZEPINE
  21. PROAIR HFA [Concomitant]
     Active Substance: ALBUTEROL SULFATE
  22. SUMATRIPTAN SUCCINATE [Concomitant]
     Active Substance: SUMATRIPTAN SUCCINATE
  23. TRIMETHOBENZAMIDE [Concomitant]
     Active Substance: TRIMETHOBENZAMIDE
  24. ONDANSETRON HYDROCHLORIDE [Concomitant]
     Active Substance: ONDANSETRON HYDROCHLORIDE
  25. CALCIUM GLUCONATE [Concomitant]
     Active Substance: CALCIUM GLUCONATE
  26. GABAPENTIN [Concomitant]
     Active Substance: GABAPENTIN
  27. IBUPROFEN [Concomitant]
     Active Substance: IBUPROFEN
  28. LYRICA [Concomitant]
     Active Substance: PREGABALIN
  29. OMEPRAZOLE [Concomitant]
     Active Substance: OMEPRAZOLE
  30. TEGRETOL [Concomitant]
     Active Substance: CARBAMAZEPINE
  31. VENTOLIN HFA [Concomitant]
     Active Substance: ALBUTEROL SULFATE
  32. VERAPAMIL [Concomitant]
     Active Substance: VERAPAMIL HYDROCHLORIDE
  33. ALBUTEROL SULFATE [Concomitant]
     Active Substance: ALBUTEROL SULFATE
  34. PEPTO-BISMOL [Concomitant]
     Active Substance: BISMUTH SUBSALICYLATE
  35. RITALIN [Concomitant]
     Active Substance: METHYLPHENIDATE HYDROCHLORIDE
  36. FLUCONAZOLE [Concomitant]
     Active Substance: FLUCONAZOLE
  37. VALTREX [Concomitant]
     Active Substance: VALACYCLOVIR HYDROCHLORIDE
     Dates: start: 20150107
  38. EXCEDRIN EXTRA STRENGTH [Concomitant]
     Active Substance: ACETAMINOPHEN\ASPIRIN\CAFFEINE
     Dates: start: 20150107
  39. ADDERALL [Concomitant]
     Active Substance: AMPHETAMINE ASPARTATE\AMPHETAMINE SULFATE\DEXTROAMPHETAMINE SACCHARATE\DEXTROAMPHETAMINE SULFATE
     Dates: start: 20181229
  40. IPRATROPIUM BROMIDE AND ALBUTEROL SULFATE [Concomitant]
     Active Substance: ALBUTEROL SULFATE\IPRATROPIUM BROMIDE
     Dates: start: 20181129

REACTIONS (1)
  - Bursitis [Unknown]
